FAERS Safety Report 9271169 (Version 22)
Quarter: 2014Q3

REPORT INFORMATION
  Report Type: Spontaneous
  Country: US (occurrence: US)
  Receive Date: 20130506
  Receipt Date: 20140821
  Transmission Date: 20150326
  Serious: Yes (Other)
  Sender: FDA-Public Use
  Company Number: PHEH2013US009839

PATIENT
  Age: 62 Year
  Sex: Female

DRUGS (9)
  1. ZOMETA [Suspect]
     Active Substance: ZOLEDRONIC ACID
     Indication: PLASMA CELL MYELOMA
     Dosage: 4 MG
     Route: 042
     Dates: end: 20110727
  2. MELPHALAN [Concomitant]
     Active Substance: MELPHALAN
     Dosage: UNK UKN, UNK
  3. ECOTRIN [Concomitant]
     Active Substance: ASPIRIN
  4. ESTRACE [Concomitant]
     Active Substance: ESTRADIOL
  5. REVLIMID [Concomitant]
     Active Substance: LENALIDOMIDE
  6. AREDIA [Suspect]
     Active Substance: PAMIDRONATE DISODIUM
     Dosage: UNK UKN, UNK
     Route: 042
  7. DEXAMETHASONE. [Concomitant]
     Active Substance: DEXAMETHASONE
  8. METFORMIN HYDROCHLORIDE. [Concomitant]
     Active Substance: METFORMIN HYDROCHLORIDE
  9. OSCAL [Concomitant]
     Active Substance: CALCIUM CARBONATE

REACTIONS (137)
  - Bone cancer [Unknown]
  - Cystocele [Unknown]
  - Muscle atrophy [Unknown]
  - Pathological fracture [Unknown]
  - Dysgeusia [Unknown]
  - Visual impairment [Not Recovered/Not Resolved]
  - Herpes zoster [Unknown]
  - Neuropathy peripheral [Unknown]
  - Plasmacytosis [Unknown]
  - Dyspepsia [Unknown]
  - Alopecia [Unknown]
  - Pain in extremity [Unknown]
  - Low density lipoprotein increased [Unknown]
  - Emotional distress [Unknown]
  - Physical disability [Unknown]
  - Rectal haemorrhage [Unknown]
  - Menopausal symptoms [Unknown]
  - Vaginal discharge [Unknown]
  - Upper respiratory tract infection [Unknown]
  - Duodenitis [Unknown]
  - Bone swelling [Unknown]
  - Cataract nuclear [Unknown]
  - Colon adenoma [Unknown]
  - Hepatic lesion [Unknown]
  - Umbilical hernia [Unknown]
  - Periodontal disease [Unknown]
  - Erythropoiesis abnormal [Unknown]
  - Leukocytosis [Unknown]
  - Osteoporosis [Unknown]
  - Abscess jaw [Unknown]
  - Microalbuminuria [Unknown]
  - Fatigue [Unknown]
  - Bone pain [Unknown]
  - Muscle spasms [Unknown]
  - Nasopharyngitis [Unknown]
  - Injury [Unknown]
  - Plasma cell myeloma [Unknown]
  - Dyspnoea [Unknown]
  - Haemorrhoids [Unknown]
  - Mitral valve incompetence [Unknown]
  - Gastritis [Unknown]
  - Exposed bone in jaw [Unknown]
  - Hypoaesthesia [Unknown]
  - Pollakiuria [Unknown]
  - Spondylitis [Unknown]
  - Excessive granulation tissue [Unknown]
  - Smear cervix abnormal [Unknown]
  - Urinary tract infection [Unknown]
  - Groin pain [Unknown]
  - Back pain [Unknown]
  - Rhinitis allergic [Unknown]
  - Arthralgia [Unknown]
  - Pain [Unknown]
  - Anxiety [Unknown]
  - Diabetes mellitus [Unknown]
  - Arthritis [Unknown]
  - Spinal osteoarthritis [Unknown]
  - Ovarian cyst [Unknown]
  - Hypercalcaemia [Unknown]
  - Polyp [Unknown]
  - Large intestine polyp [Unknown]
  - Palpitations [Unknown]
  - Fibrosis [Unknown]
  - Dysuria [Unknown]
  - Secretion discharge [Unknown]
  - Diverticulum [Unknown]
  - Pain in jaw [Unknown]
  - Diabetic nephropathy [Unknown]
  - Diarrhoea [Recovering/Resolving]
  - Musculoskeletal discomfort [Unknown]
  - Pelvic pain [Unknown]
  - Atrophic vulvovaginitis [Unknown]
  - Renal cyst [Unknown]
  - Cardiac murmur [Unknown]
  - Myelodysplastic syndrome [Unknown]
  - Osteopenia [Unknown]
  - Pubis fracture [Unknown]
  - Oropharyngeal pain [Unknown]
  - Lordosis [Unknown]
  - Plasma cell myeloma in remission [Unknown]
  - Mouth haemorrhage [Unknown]
  - Osteopetrosis [Unknown]
  - Bladder dilatation [Unknown]
  - Abdominal pain [Unknown]
  - Productive cough [Unknown]
  - Nasal congestion [Unknown]
  - Obesity [Unknown]
  - Decreased appetite [Unknown]
  - Infection [Unknown]
  - Hiatus hernia [Unknown]
  - Osteitis [Unknown]
  - Loose tooth [Unknown]
  - Gingival bleeding [Unknown]
  - Weight decreased [Recovered/Resolved]
  - Intervertebral disc space narrowing [Unknown]
  - Procedural haemorrhage [Unknown]
  - Papilloma viral infection [Unknown]
  - Toothache [Unknown]
  - Osteoarthritis [Unknown]
  - Hypertension [Unknown]
  - Flank pain [Unknown]
  - Pelvic fracture [Unknown]
  - Lymphadenopathy [Unknown]
  - Anaemia [Unknown]
  - Cellulitis [Unknown]
  - Spondylolisthesis [Unknown]
  - Haematuria [Unknown]
  - Stress urinary incontinence [Unknown]
  - Haemolytic anaemia [Unknown]
  - Tricuspid valve incompetence [Unknown]
  - Breast disorder [Unknown]
  - Tooth abscess [Unknown]
  - Discomfort [Unknown]
  - Aphagia [Unknown]
  - Constipation [Unknown]
  - Tenderness [Unknown]
  - Asthenia [Unknown]
  - Restlessness [Unknown]
  - Blood cholesterol increased [Unknown]
  - Osteonecrosis of jaw [Recovered/Resolved]
  - Deformity [Unknown]
  - Rectal polyp [Unknown]
  - Aortic arteriosclerosis [Unknown]
  - Osteosclerosis [Unknown]
  - Hepatic cyst [Unknown]
  - Syncope [Unknown]
  - Foot deformity [Unknown]
  - Joint dislocation [Unknown]
  - Head injury [Unknown]
  - Joint stiffness [Unknown]
  - Osteomyelitis [Unknown]
  - Marrow hyperplasia [Unknown]
  - Lymphocytosis [Unknown]
  - Nocturia [Unknown]
  - Mucosal inflammation [Unknown]
  - Pyrexia [Unknown]
  - Headache [Unknown]

NARRATIVE: CASE EVENT DATE: 201002
